FAERS Safety Report 9687865 (Version 1)
Quarter: 2013Q4

REPORT INFORMATION
  Report Type: Not Available
  Country: GB (occurrence: GB)
  Receive Date: 20131114
  Receipt Date: 20131114
  Transmission Date: 20140711
  Serious: Yes (Life-Threatening, Hospitalization)
  Sender: FDA-Public Use
  Company Number: GB-NAPPMUNDI-GBR-2013-0016244

PATIENT
  Age: 76 Year
  Sex: Female
  Weight: 68 kg

DRUGS (11)
  1. OXYCONTIN TABLETS 10 MG [Suspect]
     Indication: PROCEDURAL PAIN
     Dosage: 10 MG, UNK
     Route: 048
     Dates: start: 20131016, end: 20131017
  2. OXYNORM CAPSULES 10 MG [Suspect]
     Indication: BREAKTHROUGH PAIN
     Dosage: 10 MG, UNK
     Route: 048
     Dates: start: 20131016, end: 20131017
  3. CALCICHEW [Concomitant]
  4. DALTEPARIN SODIUM [Concomitant]
  5. DIHYDROCODEINE BITARTRATE [Concomitant]
  6. FLUCLOXACILLIN [Concomitant]
  7. NAPROXEN [Concomitant]
  8. OMEPRAZOLE [Concomitant]
  9. ONDANSETRON [Concomitant]
  10. PARACETAMOL [Concomitant]
  11. PREDNISOLONE [Concomitant]

REACTIONS (2)
  - Rash erythematous [Recovering/Resolving]
  - Rash pruritic [Recovering/Resolving]
